FAERS Safety Report 17995042 (Version 1)
Quarter: 2020Q3

REPORT INFORMATION
  Report Type: Spontaneous
  Country: CN (occurrence: CN)
  Receive Date: 20200708
  Receipt Date: 20200708
  Transmission Date: 20201103
  Serious: Yes (Other)
  Sender: FDA-Public Use
  Company Number: CN-BAYER-2020-135941

PATIENT
  Age: 74 Year
  Sex: Male
  Weight: 40 kg

DRUGS (1)
  1. AVELOX [Suspect]
     Active Substance: MOXIFLOXACIN HYDROCHLORIDE
     Indication: PNEUMONIA
     Dosage: 400 MG, QD
     Route: 041
     Dates: start: 20200624, end: 20200701

REACTIONS (4)
  - Basal ganglia infarction [None]
  - Emotional disorder [None]
  - Lacunar infarction [None]
  - Speech disorder [None]

NARRATIVE: CASE EVENT DATE: 20200630
